FAERS Safety Report 22658485 (Version 1)
Quarter: 2023Q2

REPORT INFORMATION
  Report Type: Spontaneous
  Country: US (occurrence: US)
  Receive Date: 20230630
  Receipt Date: 20230630
  Transmission Date: 20230721
  Serious: Yes (Other)
  Sender: FDA-Public Use
  Company Number: US-UCBSA-2023032815

PATIENT
  Age: 69 Year
  Sex: Female

DRUGS (1)
  1. CIMZIA [Suspect]
     Active Substance: CERTOLIZUMAB PEGOL
     Indication: Rheumatoid arthritis
     Dosage: 400 MILLIGRAM, UNK
     Route: 058
     Dates: start: 202303, end: 202305

REACTIONS (4)
  - Respiratory tract infection [Unknown]
  - Dyspnoea [Unknown]
  - Localised infection [Unknown]
  - Malaise [Unknown]

NARRATIVE: CASE EVENT DATE: 20230522
